FAERS Safety Report 8809466 (Version 1)
Quarter: 2012Q4

REPORT INFORMATION
  Report Type: 
  Country: CN (occurrence: CN)
  Receive Date: 20120926
  Receipt Date: 20120926
  Transmission Date: 20130627
  Serious: Yes (Death, Life-Threatening)
  Sender: FDA-Public Use
  Company Number: PHHY2012CN083726

PATIENT
  Sex: Female

DRUGS (4)
  1. ZOLEDRONIC ACID [Suspect]
     Indication: OSTEOPOROSIS
     Dosage: 5000 ug, UNK
     Route: 042
     Dates: start: 20111213
  2. ISOSORBIDE MONONITRATE [Concomitant]
     Indication: CORONARY ARTERY DISEASE
     Dosage: 20 mg, BID
     Route: 048
  3. METOPROLOL [Concomitant]
     Indication: CORONARY ARTERY DISEASE
     Dosage: 6.25 mg, BID
     Route: 048
  4. SIMVASTATIN [Concomitant]
     Dosage: 20 mg, QD
     Route: 048

REACTIONS (1)
  - Death [Fatal]
